FAERS Safety Report 21766571 (Version 2)
Quarter: 2023Q1

REPORT INFORMATION
  Report Type: Spontaneous
  Country: CN (occurrence: CN)
  Receive Date: 20221222
  Receipt Date: 20230102
  Transmission Date: 20230418
  Serious: Yes (Other)
  Sender: FDA-Public Use
  Company Number: CN-TEVA-2022-CN-2838366

PATIENT

DRUGS (6)
  1. CLOPIDOGREL [Suspect]
     Active Substance: CLOPIDOGREL BISULFATE
     Indication: Antiplatelet therapy
     Dosage: 300 MG
     Route: 065
  2. CLOPIDOGREL [Suspect]
     Active Substance: CLOPIDOGREL BISULFATE
     Dosage: 75 MILLIGRAM DAILY; SCHEDULED TO BE ADMINISTERED FOR 6 WEEKS
     Route: 065
  3. TIROFIBAN [Suspect]
     Active Substance: TIROFIBAN
     Indication: Antiplatelet therapy
     Dosage: WITHIN 3 MINUTES OF DEPLOYMENT OF THE STENT , 10 UG/KG
     Route: 042
  4. TIROFIBAN [Suspect]
     Active Substance: TIROFIBAN
     Dosage: 0.15 MICROG/KG/MIN MAINTENANCE INFUSION FOR 6-8 HOUR , ADDITIONAL INFO: THERAPY COMPLETED PRIOR TO O
     Route: 041
  5. ASPIRIN [Suspect]
     Active Substance: ASPIRIN
     Indication: Antiplatelet therapy
     Dosage: 300 MG
     Route: 065
  6. ASPIRIN [Suspect]
     Active Substance: ASPIRIN
     Dosage: 100 MILLIGRAM DAILY; SCHEDULED TO BE ADMINISTERED FOR 6 WEEKS WITH CLOPIDOGREL, FOLLOWED BY AS MONOT
     Route: 065

REACTIONS (1)
  - Post procedural haemorrhage [Unknown]
